FAERS Safety Report 19938280 (Version 1)
Quarter: 2021Q4

REPORT INFORMATION
  Report Type: Spontaneous
  Country: None (occurrence: CN)
  Receive Date: 20211011
  Receipt Date: 20211011
  Transmission Date: 20220303
  Serious: Yes (Other)
  Sender: FDA-Public Use
  Company Number: None

PATIENT
  Age: 29 Year
  Sex: Female

DRUGS (9)
  1. GANCICLOVIR [Suspect]
     Active Substance: GANCICLOVIR
     Indication: Antiviral treatment
     Dosage: 0.25 G, EVERY 0.5 DAY
     Route: 041
     Dates: start: 20210821
  2. ROCEPHIN [Suspect]
     Active Substance: CEFTRIAXONE SODIUM
     Indication: Myelitis
     Dosage: 2 G, DAILY
     Route: 041
     Dates: start: 20210825
  3. SODIUM CHLORIDE [Suspect]
     Active Substance: SODIUM CHLORIDE
     Indication: Product used for unknown indication
     Dosage: 250 ML, EVERY 0.5 DAY
     Route: 041
     Dates: start: 20210821, end: 20210831
  4. SODIUM CHLORIDE [Suspect]
     Active Substance: SODIUM CHLORIDE
     Indication: Product used for unknown indication
     Dosage: 100 ML, DAILY
     Route: 041
     Dates: start: 20210825, end: 20210907
  5. METHYLPREDNISOLONE SODIUM SUCCINATE [Concomitant]
     Active Substance: METHYLPREDNISOLONE SODIUM SUCCINATE
     Indication: Hormone therapy
     Dosage: 100 MG, DAILY
     Route: 041
     Dates: start: 20210825, end: 20210826
  6. METHYLPREDNISOLONE SODIUM SUCCINATE [Concomitant]
     Active Substance: METHYLPREDNISOLONE SODIUM SUCCINATE
     Indication: Hormone therapy
     Dosage: 500 MG, DAILY
     Route: 041
     Dates: start: 20210827, end: 20210829
  7. METHYLPREDNISOLONE SODIUM SUCCINATE [Concomitant]
     Active Substance: METHYLPREDNISOLONE SODIUM SUCCINATE
     Indication: Hormone therapy
     Dosage: 240 MG, DAILY
     Route: 041
     Dates: start: 20210830, end: 20210901
  8. METHYLPREDNISOLONE SODIUM SUCCINATE [Concomitant]
     Active Substance: METHYLPREDNISOLONE SODIUM SUCCINATE
     Indication: Hormone therapy
     Dosage: 120 MG, DAILY
     Route: 041
     Dates: start: 20210902, end: 20210904
  9. METHYLPREDNISOLONE SODIUM SUCCINATE [Concomitant]
     Active Substance: METHYLPREDNISOLONE SODIUM SUCCINATE
     Indication: Hormone therapy
     Dosage: 80 MG, DAILY
     Route: 041
     Dates: start: 20210905, end: 20210907

REACTIONS (1)
  - Liver injury [Unknown]

NARRATIVE: CASE EVENT DATE: 20210831
